FAERS Safety Report 19937316 (Version 1)
Quarter: 2021Q4

REPORT INFORMATION
  Report Type: Report from Study
  Country: None (occurrence: GB)
  Receive Date: 20211010
  Receipt Date: 20211010
  Transmission Date: 20220303
  Serious: Yes (Hospitalization)
  Sender: FDA-Public Use
  Company Number: GB-MDD US OPERATIONS-MDD202110-002065

PATIENT
  Age: 53 Year
  Sex: Female

DRUGS (8)
  1. APOMORPHINE HYDROCHLORIDE [Suspect]
     Active Substance: APOMORPHINE HYDROCHLORIDE
     Indication: Parkinson^s disease
     Route: 058
     Dates: start: 20200715
  2. APOMORPHINE HYDROCHLORIDE [Suspect]
     Active Substance: APOMORPHINE HYDROCHLORIDE
     Route: 058
     Dates: start: 20200723
  3. SINEMET [Concomitant]
     Active Substance: CARBIDOPA\LEVODOPA
     Indication: Parkinson^s disease
     Dosage: USES AS HALF OR FULL TABLETS OVER A 24 HOUR PERIOD
  4. SINEMET CR [Concomitant]
     Active Substance: CARBIDOPA\LEVODOPA
     Indication: Parkinson^s disease
  5. THYROXINE [Concomitant]
     Active Substance: LEVOTHYROXINE
     Dosage: NOT PROVIDED
  6. INSULIN NOS [Concomitant]
     Active Substance: INSULIN NOS
     Dosage: NOT PROVIDED
  7. TELMISARTAN [Concomitant]
     Active Substance: TELMISARTAN
     Dosage: NOT PROVIDED
  8. MIRTAZAPINE [Concomitant]
     Active Substance: MIRTAZAPINE
     Dosage: NOT PROVIDED

REACTIONS (2)
  - Application site infection [Unknown]
  - Infusion site nodule [Unknown]
